FAERS Safety Report 9496780 (Version 2)
Quarter: 2013Q3

REPORT INFORMATION
  Report Type: Spontaneous
  Country: US (occurrence: US)
  Receive Date: 20130904
  Receipt Date: 20130906
  Transmission Date: 20140515
  Serious: Yes (Hospitalization)
  Sender: FDA-Public Use
  Company Number: US-ROCHE-1270141

PATIENT
  Sex: Female

DRUGS (2)
  1. ACTIVASE [Suspect]
     Indication: CEREBROVASCULAR ACCIDENT
     Route: 040
  2. ACTIVASE [Suspect]
     Route: 042
     Dates: start: 20130605, end: 20130605

REACTIONS (3)
  - Swollen tongue [Unknown]
  - Angioedema [Unknown]
  - Product quality issue [Unknown]
